FAERS Safety Report 24140759 (Version 1)
Quarter: 2024Q3

REPORT INFORMATION
  Report Type: Spontaneous
  Country: US (occurrence: None)
  Receive Date: 20240725
  Receipt Date: 20240725
  Transmission Date: 20241017
  Serious: Yes (Disabling)
  Sender: Public
  Company Number: None

PATIENT
  Age: 82 Year
  Sex: Male
  Weight: 102.06 kg

DRUGS (14)
  1. SYFOVRE [Suspect]
     Active Substance: PEGCETACOPLAN
     Indication: Neovascular age-related macular degeneration
     Dosage: INJECTION INTO THE EYE??THERAPY DATES: 07-NOV-2024  AND 07-NOV-2024
     Dates: start: 2024, end: 2024
  2. SYFOVRE [Suspect]
     Active Substance: PEGCETACOPLAN
     Indication: Dry age-related macular degeneration
  3. METFORMIN [Concomitant]
     Active Substance: METFORMIN HYDROCHLORIDE
  4. METOPROLOL [Concomitant]
     Active Substance: METOPROLOL
  5. LOSARTAN [Concomitant]
     Active Substance: LOSARTAN
  6. NIFEDIPINE [Concomitant]
     Active Substance: NIFEDIPINE
  7. ASPIRIN [Concomitant]
     Active Substance: ASPIRIN
  8. vitamins d [Concomitant]
  9. MULTI-VITAMIN [Concomitant]
     Active Substance: .ALPHA.-TOCOPHEROL ACETATE, DL-\ASCORBIC ACID\CYANOCOBALAMIN\FLUORIDE ION\FOLIC ACID\NIACIN\PYRIDOXI
  10. LUTEIN [Concomitant]
     Active Substance: LUTEIN
  11. MAGNESIUM OXIDE [Concomitant]
     Active Substance: MAGNESIUM OXIDE
  12. CALCIUM [Concomitant]
     Active Substance: CALCIUM
  13. MELATONIN [Concomitant]
     Active Substance: MELATONIN
  14. MIRALAX [Concomitant]
     Active Substance: POLYETHYLENE GLYCOL 3350

REACTIONS (7)
  - Visual impairment [None]
  - Blindness unilateral [None]
  - Vision blurred [None]
  - Product substitution issue [None]
  - Eye haemorrhage [None]
  - Injection site haemorrhage [None]
  - Eye haemorrhage [None]

NARRATIVE: CASE EVENT DATE: 20231107
